FAERS Safety Report 23457268 (Version 1)
Quarter: 2024Q1

REPORT INFORMATION
  Report Type: Spontaneous
  Country: CN (occurrence: None)
  Receive Date: 20240129
  Receipt Date: 20240129
  Transmission Date: 20240410
  Serious: Yes (Hospitalization)
  Sender: FDA-Public Use
  Company Number: None

PATIENT
  Age: 39 Year
  Weight: 90 kg

DRUGS (5)
  1. ABILIFY MAINTENA [Suspect]
     Active Substance: ARIPIPRAZOLE
     Dosage: OTHER STRENGTH : 40 UGM;?
  2. ATENOLOL [Suspect]
     Active Substance: ATENOLOL
  3. OLANZAPINE [Suspect]
     Active Substance: OLANZAPINE
  4. PALIPERIDONE [Suspect]
     Active Substance: PALIPERIDONE
  5. ESTAZOLAM [Suspect]
     Active Substance: ESTAZOLAM

REACTIONS (7)
  - Acute kidney injury [None]
  - Schizophrenia [None]
  - Emotional disorder [None]
  - Renal cyst [None]
  - Glomerulonephritis acute [None]
  - Respiratory tract infection [None]
  - C-reactive protein increased [None]

NARRATIVE: CASE EVENT DATE: 20240117
